FAERS Safety Report 17132954 (Version 2)
Quarter: 2019Q4

REPORT INFORMATION
  Report Type: Spontaneous
  Country: FR (occurrence: FR)
  Receive Date: 20191210
  Receipt Date: 20191224
  Transmission Date: 20200122
  Serious: Yes (Hospitalization)
  Sender: FDA-Public Use
  Company Number: FR-TEVA-2019-FR-1148288

PATIENT
  Age: 61 Year
  Sex: Male
  Weight: 79.2 kg

DRUGS (3)
  1. RIFADINE IV 600 MG, POUDRE ET SOLVANT POUR SOLUTION POUR PERFUSION [Suspect]
     Active Substance: RIFAMPIN
     Dosage: 2400 MG PER DAY
     Route: 048
     Dates: start: 20191003, end: 20191031
  2. OFLOXACINE [Suspect]
     Active Substance: OFLOXACIN
     Indication: INTERVERTEBRAL DISCITIS
     Dosage: 400 MG PER DAY
     Route: 048
     Dates: start: 20191003, end: 20191031
  3. RIFADINE IV 600 MG, POUDRE ET SOLVANT POUR SOLUTION POUR PERFUSION [Suspect]
     Active Substance: RIFAMPIN
     Indication: INTERVERTEBRAL DISCITIS
     Dosage: 2400 MG PER DAY
     Route: 042
     Dates: start: 20190929, end: 20191003

REACTIONS (1)
  - Dermatitis exfoliative generalised [Recovered/Resolved]

NARRATIVE: CASE EVENT DATE: 20191027
